FAERS Safety Report 13036985 (Version 2)
Quarter: 2017Q1

REPORT INFORMATION
  Report Type: Spontaneous
  Country: IT (occurrence: IT)
  Receive Date: 20161216
  Receipt Date: 20170210
  Transmission Date: 20170428
  Serious: Yes (Hospitalization)
  Sender: FDA-Public Use
  Company Number: IT-TEVA-720260ACC

PATIENT
  Age: 52 Year
  Sex: Female

DRUGS (2)
  1. CONTRAMAL - 100 MG/2 ML SOLUZIONE INIETTABILE [Suspect]
     Active Substance: TRAMADOL HYDROCHLORIDE
     Indication: PAIN
     Route: 030
     Dates: start: 20161130, end: 20161130
  2. LORAZEPAM. [Suspect]
     Active Substance: LORAZEPAM
     Indication: ANXIETY
     Route: 048
     Dates: start: 20161130, end: 20161130

REACTIONS (4)
  - Overdose [Unknown]
  - Bradyphrenia [Unknown]
  - Intentional self-injury [Unknown]
  - Bradykinesia [Unknown]

NARRATIVE: CASE EVENT DATE: 20161130
